FAERS Safety Report 6817776-6 (Version None)
Quarter: 2010Q3

REPORT INFORMATION
  Report Type: 
  Country: None (occurrence: None)
  Receive Date: 20100706
  Receipt Date: 20100628
  Transmission Date: 20110219
  Serious: Yes (Death)
  Sender: FDA-Public Use
  Company Number: US-GILEAD-2009-0026192

PATIENT
  Sex: Female
  Weight: 72.186 kg

DRUGS (17)
  1. LETAIRIS [Suspect]
     Indication: PULMONARY ARTERIAL HYPERTENSION
     Route: 048
     Dates: start: 20091015
  2. DIGOXIN [Concomitant]
  3. FUROSEMIDE [Concomitant]
  4. SPIRONOLACTONE [Concomitant]
  5. PLAVIX [Concomitant]
  6. CALCITRIOL [Concomitant]
  7. CYMBALTA [Concomitant]
  8. COMPAZINE [Concomitant]
  9. LOMOTIL [Concomitant]
  10. AMBIEN [Concomitant]
  11. SYNTHROID [Concomitant]
  12. PILOCARPINE HCL [Concomitant]
  13. NEXIUM [Concomitant]
  14. POTASSIUM CHLORIDE [Concomitant]
  15. HYDROCODONE BITARTRATE AND ACETAMINOPHEN [Concomitant]
  16. MAGNESIUM OXIDE [Concomitant]
  17. VITAMIN D [Concomitant]

REACTIONS (1)
  - DEATH [None]
